FAERS Safety Report 18395501 (Version 2)
Quarter: 2020Q4

REPORT INFORMATION
  Report Type: Spontaneous
  Country: DE (occurrence: DE)
  Receive Date: 20201017
  Receipt Date: 20201028
  Transmission Date: 20210114
  Serious: Yes (Other)
  Sender: FDA-Public Use
  Company Number: DE-HETERO-HET2020DE01139

PATIENT
  Age: 80 Year
  Sex: Male
  Weight: 65 kg

DRUGS (18)
  1. LEVETIRACETAM. [Suspect]
     Active Substance: LEVETIRACETAM
     Dosage: 500 UNK,500-0-750MG
     Route: 048
     Dates: start: 20190913
  2. LAMOTRIGIN [Suspect]
     Active Substance: LAMOTRIGINE
     Dosage: 125 MG (125-0-125 )
     Route: 065
     Dates: start: 20171220
  3. LAMOTRIGIN [Suspect]
     Active Substance: LAMOTRIGINE
     Dosage: 25 MG (0-0-25 )
     Route: 065
     Dates: start: 20120626
  4. ZOPICLODURA [Concomitant]
     Active Substance: ZOPICLONE
     Indication: SLEEP DISORDER
     Dosage: 7.5 MICROGRAM, PRN
     Route: 065
  5. ACETYLSALICYLIC ACID [Concomitant]
     Active Substance: ASPIRIN
     Indication: THROMBOSIS PROPHYLAXIS
     Dosage: 100 MG, QD
     Route: 065
  6. LAMOTRIGIN [Suspect]
     Active Substance: LAMOTRIGINE
     Dosage: 25 MG, TID (25 - 25 - 25MG )
     Route: 065
     Dates: start: 20161108
  7. LAMOTRIGIN [Suspect]
     Active Substance: LAMOTRIGINE
     Dosage: 100 MG (100-0-100MG )
     Route: 065
     Dates: start: 20171107
  8. LAMOTRIGIN [Suspect]
     Active Substance: LAMOTRIGINE
     Dosage: 75 MG, BID (75-0-75MG )
     Route: 065
     Dates: start: 20170207
  9. GLIVEC [Concomitant]
     Active Substance: IMATINIB MESYLATE
     Dosage: 400 MG (0-0-400 )
     Route: 065
     Dates: start: 20140701, end: 20141222
  10. LAMOTRIGIN [Suspect]
     Active Substance: LAMOTRIGINE
     Dosage: 200 MG, BID (200 - 0 - 200 )
     Route: 065
     Dates: start: 20171107
  11. RAMIPRIL-ISIS [Concomitant]
     Indication: BLOOD PRESSURE MEASUREMENT
     Dosage: UNK
     Route: 065
     Dates: start: 20190705
  12. TAVOR EXPIDET [Concomitant]
     Active Substance: LORAZEPAM
     Indication: PRODUCT USED FOR UNKNOWN INDICATION
     Dosage: UNK , PRN (AS NECESSARY)
     Route: 065
  13. LAMOTRIGIN [Suspect]
     Active Substance: LAMOTRIGINE
     Indication: EPILEPSY
     Dosage: 150 MG, BID (150-0-1150MG )
     Route: 065
     Dates: start: 20180211
  14. GLIVEC [Concomitant]
     Active Substance: IMATINIB MESYLATE
     Indication: CHRONIC MYELOID LEUKAEMIA
     Dosage: 100 MG, QID (4X100MG/TAG )
     Route: 065
     Dates: start: 20020211
  15. TASIGNA [Concomitant]
     Active Substance: NILOTINIB
     Indication: PRODUCT USED FOR UNKNOWN INDICATION
     Dosage: 200 MG
     Route: 065
     Dates: start: 201310
  16. SIMVASTATIN. [Concomitant]
     Active Substance: SIMVASTATIN
     Indication: BLOOD CHOLESTEROL
     Dosage: 20 MG
     Route: 065
  17. LEVETIRACETAM. [Suspect]
     Active Substance: LEVETIRACETAM
     Indication: EPILEPSY
     Dosage: 1500 MG, QD
     Route: 048
     Dates: start: 20191030
  18. LEVETIRACETAM. [Suspect]
     Active Substance: LEVETIRACETAM
     Dosage: 1250 MG, (500-0-750)
     Route: 065
     Dates: start: 20200219

REACTIONS (7)
  - Basal cell carcinoma [Not Recovered/Not Resolved]
  - Adverse reaction [Unknown]
  - Fatigue [Not Recovered/Not Resolved]
  - Gait disturbance [Not Recovered/Not Resolved]
  - Dizziness [Not Recovered/Not Resolved]
  - Vertigo positional [Not Recovered/Not Resolved]
  - Depression [Not Recovered/Not Resolved]

NARRATIVE: CASE EVENT DATE: 20190920
